FAERS Safety Report 17740091 (Version 1)
Quarter: 2020Q2

REPORT INFORMATION
  Report Type: Spontaneous
  Country: US (occurrence: US)
  Receive Date: 20200501
  Receipt Date: 20200501
  Transmission Date: 20200714
  Serious: No
  Sender: FDA-Public Use
  Company Number: None

PATIENT
  Age: 58 Year
  Sex: Male
  Weight: 93.89 kg

DRUGS (1)
  1. HUMIRA [Suspect]
     Active Substance: ADALIMUMAB
     Indication: ANKYLOSING SPONDYLITIS
     Dosage: ?          OTHER STRENGTH:40MG/0.8ML;OTHER FREQUENCY:EVERY 2 WEEKS;?
     Route: 058
     Dates: start: 201912

REACTIONS (4)
  - Pigmentation disorder [None]
  - Chromaturia [None]
  - Pustule [None]
  - Dyspnoea [None]
